FAERS Safety Report 9898900 (Version 2)
Quarter: 2014Q1

REPORT INFORMATION
  Report Type: Spontaneous
  Country: US (occurrence: US)
  Receive Date: 20140214
  Receipt Date: 20140214
  Transmission Date: 20141002
  Serious: Yes (Hospitalization)
  Sender: FDA-Public Use
  Company Number: US-GLAXOSMITHKLINE-A0833441A

PATIENT
  Sex: Male
  Weight: 120.5 kg

DRUGS (6)
  1. AVANDIA [Suspect]
     Indication: DIABETES MELLITUS
     Dosage: 4MG PER DAY
     Route: 048
     Dates: start: 1999
  2. METFORMIN [Concomitant]
  3. LOTREL [Concomitant]
  4. LABETALOL [Concomitant]
  5. CARDURA [Concomitant]
  6. FLEXERIL [Concomitant]

REACTIONS (7)
  - Cardiac failure congestive [Unknown]
  - Cardiomyopathy [Unknown]
  - Coronary artery occlusion [Unknown]
  - Atrial flutter [Unknown]
  - Atrial fibrillation [Unknown]
  - Intracardiac thrombus [Unknown]
  - Cardiovascular disorder [Unknown]
